FAERS Safety Report 7504042-9 (Version None)
Quarter: 2011Q2

REPORT INFORMATION
  Report Type: 
  Country: None (occurrence: None)
  Receive Date: 20110525
  Receipt Date: 20110520
  Transmission Date: 20111010
  Serious: Yes (Death, Other)
  Sender: FDA-Public Use
  Company Number: PHEH2009US13536

PATIENT
  Sex: Female

DRUGS (4)
  1. CHEMOTHERAPEUTICS NOS [Concomitant]
  2. RADIATION [Concomitant]
  3. AREDIA [Suspect]
  4. ZOMETA [Suspect]

REACTIONS (36)
  - PAIN IN JAW [None]
  - PERICARDIAL EFFUSION [None]
  - CEREBRAL ISCHAEMIA [None]
  - LIVER DISORDER [None]
  - RENAL DISORDER [None]
  - SKIN LESION [None]
  - OSTEONECROSIS OF JAW [None]
  - AORTIC ARTERIOSCLEROSIS [None]
  - GASTRIC POLYPS [None]
  - PRIMARY SEQUESTRUM [None]
  - METASTASES TO SPINE [None]
  - METASTASES TO BONE [None]
  - OSTEOSCLEROSIS [None]
  - PLEURAL EFFUSION [None]
  - MASS [None]
  - LYMPHADENOPATHY [None]
  - DECUBITUS ULCER [None]
  - GASTRITIS [None]
  - FEMORAL NECK FRACTURE [None]
  - LUNG NEOPLASM [None]
  - HIP FRACTURE [None]
  - BONE PAIN [None]
  - HIATUS HERNIA [None]
  - PATHOLOGICAL FRACTURE [None]
  - INJURY [None]
  - METASTASES TO CENTRAL NERVOUS SYSTEM [None]
  - EXPOSED BONE IN JAW [None]
  - DEATH [None]
  - OSTEOLYSIS [None]
  - METASTASES TO LUNG [None]
  - PULMONARY FIBROSIS [None]
  - OVERDOSE [None]
  - TRICUSPID VALVE INCOMPETENCE [None]
  - MITRAL VALVE INCOMPETENCE [None]
  - SINUS DISORDER [None]
  - SPINAL COMPRESSION FRACTURE [None]
